FAERS Safety Report 6543690-X (Version None)
Quarter: 2010Q1

REPORT INFORMATION
  Report Type: 
  Country: None (occurrence: None)
  Receive Date: 20100119
  Receipt Date: 20100119
  Transmission Date: 20100710
  Serious: No
  Sender: FDA-Public Use
  Company Number: None

PATIENT
  Age: 59 Year
  Sex: Female
  Weight: 73.9363 kg

DRUGS (1)
  1. ZICAM NASAL SWABS [Suspect]
     Indication: NASOPHARYNGITIS
     Dates: start: 20080915, end: 20080918

REACTIONS (2)
  - HYPOGEUSIA [None]
  - HYPOSMIA [None]
